FAERS Safety Report 9482105 (Version 3)
Quarter: 2013Q4

REPORT INFORMATION
  Report Type: Report from Study
  Country: VE (occurrence: VE)
  Receive Date: 20130828
  Receipt Date: 20131008
  Transmission Date: 20140711
  Serious: Yes (Other)
  Sender: FDA-Public Use
  Company Number: PHHY2013VE092542

PATIENT
  Age: 59 Year
  Sex: Male

DRUGS (5)
  1. LEPONEX [Suspect]
     Indication: SCHIZOPHRENIA
     Dosage: 100 MG, QD
     Route: 048
  2. LEPONEX [Suspect]
     Indication: INSOMNIA
     Dosage: 100 MG, DAILY
     Route: 048
     Dates: start: 20130822
  3. VENLAFAXINA [Concomitant]
     Indication: ANXIETY
     Dosage: UNK, QD
     Route: 048
  4. RIVOTRIL [Concomitant]
     Indication: STRESS
     Dosage: UNK, ONLY WHEN HE IS DISTRESSED
  5. SALBUTAMOL [Concomitant]
     Indication: CHRONIC OBSTRUCTIVE PULMONARY DISEASE
     Dosage: UNK, ONLY WHEN HE IS SUFFOCATED

REACTIONS (6)
  - Chronic obstructive pulmonary disease [Recovering/Resolving]
  - Prostatitis [Recovered/Resolved]
  - Respiratory tract infection [Recovered/Resolved]
  - Pharyngitis [Recovering/Resolving]
  - Increased upper airway secretion [Recovering/Resolving]
  - Pyrexia [Recovered/Resolved]
